FAERS Safety Report 5264342-2 (Version None)
Quarter: 2007Q1

REPORT INFORMATION
  Report Type: 
  Country: None (occurrence: None)
  Receive Date: 20061213
  Receipt Date: 20050208
  Transmission Date: 20070707
  Serious: Yes (Other)
  Sender: FDA-Public Use
  Company Number: 2005UW00557

PATIENT
  Age: 43 Year
  Sex: Female
  Weight: 75.2971 kg

DRUGS (4)
  1. IRESSA [Suspect]
     Indication: NON-SMALL CELL LUNG CANCER
     Dosage: 250 MG DAILY PO
     Route: 048
     Dates: start: 20031008, end: 20050107
  2. NEXIUM [Concomitant]
  3. VICODIN [Concomitant]
  4. ALBUTEROL [Concomitant]

REACTIONS (2)
  - CORNEAL DISORDER [None]
  - VISION BLURRED [None]
